FAERS Safety Report 9614222 (Version 2)
Quarter: 2013Q4

REPORT INFORMATION
  Report Type: Spontaneous
  Country: US (occurrence: US)
  Receive Date: 20131011
  Receipt Date: 20131021
  Transmission Date: 20140711
  Serious: Yes (Hospitalization)
  Sender: FDA-Public Use
  Company Number: US-AMGEN-USASP2013071157

PATIENT
  Age: 75 Year
  Sex: Female

DRUGS (2)
  1. ENBREL [Suspect]
     Indication: RHEUMATOID ARTHRITIS
     Dosage: 50 MG, QWK
     Route: 065
     Dates: start: 20130815, end: 20130905
  2. CLINDAMYCIN /00166002/ [Suspect]
     Indication: SINUSITIS
     Dosage: UNK
     Route: 065

REACTIONS (8)
  - Hypertension [Recovered/Resolved]
  - Headache [Recovered/Resolved]
  - Oropharyngeal pain [Not Recovered/Not Resolved]
  - Arthralgia [Unknown]
  - Tonsillitis [Unknown]
  - Sinusitis [Recovered/Resolved]
  - Skin mass [Not Recovered/Not Resolved]
  - Lymph gland infection [Not Recovered/Not Resolved]
